FAERS Safety Report 8111050-6 (Version None)
Quarter: 2012Q1

REPORT INFORMATION
  Report Type: 
  Country: None (occurrence: None)
  Receive Date: 20120203
  Receipt Date: 20110315
  Transmission Date: 20120608
  Serious: No
  Sender: FDA-Public Use
  Company Number: US-GLAXOSMITHKLINE-A0918318A

PATIENT
  Sex: Female

DRUGS (14)
  1. DONNATAL [Concomitant]
  2. WELLBUTRIN [Suspect]
     Indication: DEPRESSION
     Dosage: 100MG PER DAY
     Route: 048
     Dates: end: 20101201
  3. PEPCID [Concomitant]
  4. ASPIRIN [Concomitant]
  5. MIRAPEX [Concomitant]
  6. LORAZEPAM [Concomitant]
  7. SEPTRA [Concomitant]
  8. COLACE [Concomitant]
  9. RHODIOLA [Concomitant]
  10. LAMICTAL [Suspect]
     Indication: DEPRESSION
     Dosage: 50MG PER DAY
     Route: 048
     Dates: start: 20101201
  11. LAMOTRIGINE [Suspect]
     Indication: DEPRESSION
     Dosage: 25MG PER DAY
     Route: 048
     Dates: start: 20110101
  12. EFFEXOR XR [Concomitant]
     Indication: PRODUCT USED FOR UNKNOWN INDICATION
     Route: 065
  13. SANCTURA XR [Concomitant]
  14. FIBERALL [Concomitant]

REACTIONS (8)
  - HEADACHE [None]
  - SKIN ODOUR ABNORMAL [None]
  - RESTLESS LEGS SYNDROME [None]
  - NAUSEA [None]
  - ARTHRALGIA [None]
  - RASH [None]
  - GENITAL RASH [None]
  - URINARY INCONTINENCE [None]
